FAERS Safety Report 17405555 (Version 1)
Quarter: 2020Q1

REPORT INFORMATION
  Report Type: Spontaneous
  Country: GB (occurrence: GB)
  Receive Date: 20200212
  Receipt Date: 20200212
  Transmission Date: 20200409
  Serious: Yes (Death, Hospitalization)
  Sender: FDA-Public Use
  Company Number: GB-TEVA-2020-GB-1184399

PATIENT
  Age: 74 Year
  Sex: Male
  Weight: 61.1 kg

DRUGS (6)
  1. FERROUS SULFATE. [Concomitant]
     Active Substance: FERROUS SULFATE
     Dosage: 600 MG
     Route: 048
  2. METFORMIN [Suspect]
     Active Substance: METFORMIN HYDROCHLORIDE
     Dosage: 2 GRAM
     Route: 048
     Dates: end: 20200116
  3. SIMVASTATIN. [Concomitant]
     Active Substance: SIMVASTATIN
     Dosage: 40 MG AT NIGHT
     Route: 048
  4. EMPAGLIFLOZIN [Suspect]
     Active Substance: EMPAGLIFLOZIN
     Dosage: 25 MG
     Route: 048
     Dates: end: 20200116
  5. HUMULIN M3 [Concomitant]
     Active Substance: INSULIN HUMAN
     Dosage: SUSPENSION FOR INJECTION IN PRE-FILLED PEN, 30UNITS BREAKFAST 6UNITS TEATIME
     Route: 058
  6. LISINOPRIL. [Suspect]
     Active Substance: LISINOPRIL
     Dosage: 5 MG IN THE MORNING
     Route: 048
     Dates: end: 20200116

REACTIONS (7)
  - Cardiac arrest [Fatal]
  - Hyperlactacidaemia [Fatal]
  - Vomiting [Fatal]
  - Acute kidney injury [Fatal]
  - Acidosis [Fatal]
  - Malaise [Fatal]
  - Hyperglycaemia [Fatal]

NARRATIVE: CASE EVENT DATE: 20200116
